FAERS Safety Report 16555309 (Version 1)
Quarter: 2019Q3

REPORT INFORMATION
  Report Type: Spontaneous
  Country: US (occurrence: US)
  Receive Date: 20190710
  Receipt Date: 20190710
  Transmission Date: 20191004
  Serious: No
  Sender: FDA-Public Use
  Company Number: US-TEVA-2019-US-1073922

PATIENT
  Age: 56 Year
  Sex: Female

DRUGS (17)
  1. SYNRIBO [Suspect]
     Active Substance: OMACETAXINE MEPESUCCINATE
     Indication: CHRONIC MYELOID LEUKAEMIA
     Dosage: 2.3MG/0.66ML
     Dates: start: 20190531
  2. CELEBREX [Concomitant]
     Active Substance: CELECOXIB
  3. ELIQUIS [Concomitant]
     Active Substance: APIXABAN
  4. CYMBALTA [Concomitant]
     Active Substance: DULOXETINE HYDROCHLORIDE
  5. IMITREX [Concomitant]
     Active Substance: SUMATRIPTAN SUCCINATE
  6. AMITIZA [Concomitant]
     Active Substance: LUBIPROSTONE
  7. XANAX [Concomitant]
     Active Substance: ALPRAZOLAM
  8. ALLOPURINOL. [Concomitant]
     Active Substance: ALLOPURINOL
  9. ACETAMINOPHEN. [Concomitant]
     Active Substance: ACETAMINOPHEN
  10. AMITRIPTYLIN [Concomitant]
     Active Substance: AMITRIPTYLINE
  11. ASPIRIN. [Concomitant]
     Active Substance: ASPIRIN
  12. WELLBUTRIN XL [Concomitant]
     Active Substance: BUPROPION HYDROCHLORIDE
  13. ALBUTEROL. [Concomitant]
     Active Substance: ALBUTEROL
  14. LASIX [Concomitant]
     Active Substance: FUROSEMIDE
  15. LUNESTA [Concomitant]
     Active Substance: ESZOPICLONE
  16. NEURONTIN [Concomitant]
     Active Substance: GABAPENTIN
  17. EMBEDA [Concomitant]
     Active Substance: MORPHINE SULFATE\NALTREXONE HYDROCHLORIDE

REACTIONS (1)
  - Stomatitis [Unknown]
